FAERS Safety Report 18546523 (Version 1)
Quarter: 2020Q4

REPORT INFORMATION
  Report Type: Spontaneous
  Country: US (occurrence: US)
  Receive Date: 20201125
  Receipt Date: 20201125
  Transmission Date: 20210114
  Serious: No
  Sender: FDA-Public Use
  Company Number: US-PFIZER INC-2020461129

PATIENT
  Sex: Female

DRUGS (1)
  1. LATANOPROST. [Suspect]
     Active Substance: LATANOPROST
     Indication: MACULAR DEGENERATION
     Dosage: UNK UNK, 1X/DAY (1 DROP IN EACH EYE EVERY NIGHT )
     Route: 047

REACTIONS (2)
  - COVID-19 [Unknown]
  - Off label use [Unknown]
